FAERS Safety Report 4865663-5 (Version None)
Quarter: 2005Q4

REPORT INFORMATION
  Report Type: 
  Country: None (occurrence: None)
  Receive Date: 20051220
  Receipt Date: 20051201
  Transmission Date: 20060501
  Serious: Yes (Hospitalization, Other)
  Sender: FDA-Public Use
  Company Number: USA0511112562

PATIENT
  Age: 81 Year
  Sex: Female

DRUGS (4)
  1. FORTEO [Suspect]
     Indication: OSTEOPOROSIS
     Dates: start: 20050801
  2. ACIPHEX [Concomitant]
  3. ENTOCORT (BUDESONIDE) [Concomitant]
  4. FORTEO PEN, 250MCG/ML) (FORTEO PEN 250MCG/ML) (3ML)) PEN, DISPOSABLE [Concomitant]

REACTIONS (3)
  - FALL [None]
  - HIP FRACTURE [None]
  - PHARMACEUTICAL PRODUCT COMPLAINT [None]
